FAERS Safety Report 8098917-2 (Version None)
Quarter: 2012Q1

REPORT INFORMATION
  Report Type: 
  Country: None (occurrence: None)
  Receive Date: 20120129
  Receipt Date: 20110926
  Transmission Date: 20120608
  Serious: No
  Sender: FDA-Public Use
  Company Number: US-ABBOTT-11P-163-0857982-00

PATIENT
  Age: 54 Year
  Sex: Female

DRUGS (3)
  1. THYROID TAB [Concomitant]
     Indication: PRODUCT USED FOR UNKNOWN INDICATION
  2. ZYRTEC [Concomitant]
     Indication: PRODUCT USED FOR UNKNOWN INDICATION
     Dosage: OVER THE COUNTER
  3. HUMIRA [Suspect]
     Indication: PSORIASIS

REACTIONS (1)
  - HYPOTHYROIDISM [None]
